FAERS Safety Report 16550815 (Version 1)
Quarter: 2019Q3

REPORT INFORMATION
  Report Type: Spontaneous
  Country: US (occurrence: US)
  Receive Date: 20190710
  Receipt Date: 20190710
  Transmission Date: 20191004
  Serious: No
  Sender: FDA-Public Use
  Company Number: US-TEVA-2019-US-1071413

PATIENT
  Sex: Male
  Weight: 74 kg

DRUGS (1)
  1. COPAXONE [Suspect]
     Active Substance: GLATIRAMER ACETATE
     Indication: MULTIPLE SCLEROSIS
     Route: 065
     Dates: start: 2011

REACTIONS (3)
  - Pulmonary mass [Unknown]
  - Lymphadenopathy [Unknown]
  - Injection site induration [Unknown]
